FAERS Safety Report 21219098 (Version 1)
Quarter: 2022Q3

REPORT INFORMATION
  Report Type: Spontaneous
  Country: None (occurrence: CN)
  Receive Date: 20220816
  Receipt Date: 20220816
  Transmission Date: 20221027
  Serious: Yes (Hospitalization)
  Sender: FDA-Public Use
  Company Number: CN-Jiangsu Hengrui Medicine Co., Ltd.-2131941

PATIENT
  Age: 59 Year
  Sex: Female
  Weight: 61 kg

DRUGS (3)
  1. LETROZOLE [Suspect]
     Active Substance: LETROZOLE
     Indication: Breast cancer
     Route: 048
     Dates: start: 20220422, end: 20220621
  2. IBANDRONATE SODIUM [Suspect]
     Active Substance: IBANDRONATE SODIUM
     Route: 041
     Dates: start: 20220422, end: 20220422
  3. SODIUM CHLORIDE [Concomitant]
     Active Substance: SODIUM CHLORIDE
     Route: 041
     Dates: start: 20220422, end: 20220422

REACTIONS (2)
  - Full blood count decreased [Recovering/Resolving]
  - Concomitant disease aggravated [Recovering/Resolving]

NARRATIVE: CASE EVENT DATE: 20220511
